FAERS Safety Report 25973864 (Version 2)
Quarter: 2025Q4

REPORT INFORMATION
  Report Type: Spontaneous
  Country: CH (occurrence: CH)
  Receive Date: 20251029
  Receipt Date: 20251107
  Transmission Date: 20260118
  Serious: Yes (Death, Life-Threatening, Disabling, Other)
  Sender: BRISTOL-MYERS SQUIBB COMPANY
  Company Number: CH-BRISTOL-MYERS SQUIBB COMPANY-2025-146289

PATIENT
  Age: 80 Year
  Sex: Male

DRUGS (24)
  1. REBLOZYL [Suspect]
     Active Substance: LUSPATERCEPT-AAMT
     Indication: Myelodysplastic syndrome
     Route: 058
     Dates: start: 20241204, end: 20250516
  2. REBLOZYL [Suspect]
     Active Substance: LUSPATERCEPT-AAMT
     Indication: Cardiac failure chronic
     Route: 058
     Dates: start: 20250114
  3. REBLOZYL [Suspect]
     Active Substance: LUSPATERCEPT-AAMT
     Indication: Renal failure
  4. REBLOZYL [Suspect]
     Active Substance: LUSPATERCEPT-AAMT
     Indication: Anaemia
  5. AZACITIDINE [Concomitant]
     Active Substance: AZACITIDINE
     Indication: Product used for unknown indication
  6. VENETOCLAX [Concomitant]
     Active Substance: VENETOCLAX
     Indication: Product used for unknown indication
  7. ELIQUIS [Concomitant]
     Active Substance: APIXABAN
     Indication: Cardiac failure
     Dosage: 1 MORNING, 1 EVENING
  8. ELIQUIS [Concomitant]
     Active Substance: APIXABAN
     Indication: Atrial fibrillation
  9. DIOVAN [Concomitant]
     Active Substance: VALSARTAN
     Indication: Hypertension
     Dosage: 1 MORNING, 1 EVENING
  10. JARDIANCE [Concomitant]
     Active Substance: EMPAGLIFLOZIN
     Indication: Diabetes mellitus
     Dosage: 1 MORNING
  11. FEBUXOSTAT [Concomitant]
     Active Substance: FEBUXOSTAT
     Indication: Hyperuricaemia
     Dosage: 1 EVENING, NOTE: ONLY MONDAY-FRIDAY
  12. CIPRALEX [Concomitant]
     Active Substance: ESCITALOPRAM OXALATE
     Indication: Depression
     Dosage: 2 MORNING
  13. PANTOZOL [Concomitant]
     Active Substance: PANTOPRAZOLE SODIUM
     Indication: Product used for unknown indication
     Dosage: 1 MORNING
  14. THIAMINE HYDROCHLORIDE [Concomitant]
     Active Substance: THIAMINE HYDROCHLORIDE
     Indication: Product used for unknown indication
     Dosage: 1 MORNING, NOTE: ONLY MONDAYS AND THURSDAYS
  15. Becozym Forte [Concomitant]
     Indication: Product used for unknown indication
     Dosage: SUGAR-COATED 1 MORNING, NOTE: ONLY MONDAYS
  16. Vide [Concomitant]
     Indication: Product used for unknown indication
     Dosage: 3 DROPS (100 UNITS / DROP) (EQUALS 4500 UNITS/ML): 8 MORNING
  17. ONDANSETRON [Concomitant]
     Active Substance: ONDANSETRON
     Indication: Nausea
     Dosage: 1 MORNING, 1 EVENING, NOTE: UP TO 4 X DAILY
     Dates: start: 20250102
  18. FOLIC ACID [Concomitant]
     Active Substance: FOLIC ACID
     Indication: Product used for unknown indication
     Dosage: 1 MORNING, NOTE: ONLY 1 X / WEEK (MONDAYS)
  19. LASIX [Concomitant]
     Active Substance: FUROSEMIDE
     Indication: Cardiac failure
     Dosage: AMPOULE 2 ML (20 MG/ AMPOULE): 2 MORNING, NOTE: ALWAYS AFTER ERYTHROCYTE CONCENTRATE ADMINISTRATION INTRAVENOUSLY
     Route: 042
  20. Levocetirizine Spirig HC [Concomitant]
     Indication: Product used for unknown indication
     Dosage: 1 MORNING
  21. LASIX [Concomitant]
     Active Substance: FUROSEMIDE
     Indication: Product used for unknown indication
     Dosage: 1 MORNING, 1 LUNCHTIME
  22. MAGNESIUM ASPARTATE HYDROCHLORIDE [Concomitant]
     Active Substance: MAGNESIUM ASPARTATE HYDROCHLORIDE
     Indication: Muscle spasms
     Dosage: 1-2 TABLETS/DAY
  23. AMOXICILLIN\CLAVULANIC ACID [Concomitant]
     Active Substance: AMOXICILLIN\CLAVULANIC ACID
     Indication: Product used for unknown indication
     Dosage: 1 MORNING, 1 EVENING, NOTE: EVERY 12 HOURS FOR 7 DAYS
  24. Rheumalix forte [Concomitant]
     Indication: Product used for unknown indication
     Dosage: 1 MORNING, 1 EVENING

REACTIONS (3)
  - Off label use [Unknown]
  - Cardiac failure acute [Fatal]
  - Transformation to acute myeloid leukaemia [Fatal]
